FAERS Safety Report 10458142 (Version 4)
Quarter: 2018Q2

REPORT INFORMATION
  Report Type: Report from Study
  Country: US (occurrence: US)
  Receive Date: 20140917
  Receipt Date: 20180511
  Transmission Date: 20180711
  Serious: Yes (Other)
  Sender: FDA-Public Use
  Company Number: US-ROCHE-1304662

PATIENT
  Age: 79 Year
  Sex: Male

DRUGS (11)
  1. OMEPRAZOLE. [Concomitant]
     Active Substance: OMEPRAZOLE
  2. TEMAZEPAM. [Concomitant]
     Active Substance: TEMAZEPAM
  3. TAMSULOSIN [Concomitant]
     Active Substance: TAMSULOSIN
  4. ERIVEDGE [Suspect]
     Active Substance: VISMODEGIB
     Indication: BASAL CELL CARCINOMA
     Route: 048
     Dates: start: 20130622
  5. ZOLPIDEM [Concomitant]
     Active Substance: ZOLPIDEM\ZOLPIDEM TARTRATE
  6. VITAMIN B3 [Concomitant]
     Active Substance: NIACIN
  7. PRAVASTATIN. [Concomitant]
     Active Substance: PRAVASTATIN
  8. METOPROLOL. [Concomitant]
     Active Substance: METOPROLOL
  9. DIGOXIN. [Concomitant]
     Active Substance: DIGOXIN
  10. LISINOPRIL. [Concomitant]
     Active Substance: LISINOPRIL
  11. AMLODIPINE [Concomitant]
     Active Substance: AMLODIPINE BESYLATE

REACTIONS (15)
  - Fatigue [Unknown]
  - Muscle spasms [Recovering/Resolving]
  - Muscle spasms [Unknown]
  - Prostate cancer [Unknown]
  - Constipation [Recovering/Resolving]
  - Alopecia [Recovering/Resolving]
  - Weight decreased [Unknown]
  - Neoplasm malignant [Not Recovered/Not Resolved]
  - Hypoaesthesia [Unknown]
  - Ageusia [Unknown]
  - Weight decreased [Recovered/Resolved]
  - Pain [Unknown]
  - Pain in extremity [Unknown]
  - Arthralgia [Unknown]
  - Dysgeusia [Recovering/Resolving]

NARRATIVE: CASE EVENT DATE: 20131210
